FAERS Safety Report 8553287-8 (Version None)
Quarter: 2012Q3

REPORT INFORMATION
  Report Type: 
  Country: None (occurrence: None)
  Receive Date: 20120731
  Receipt Date: 20120727
  Transmission Date: 20120928
  Serious: Yes (Death, Other)
  Sender: FDA-Public Use
  Company Number: VE-PFIZER INC-2012174881

PATIENT
  Age: 84 Year
  Sex: Male

DRUGS (1)
  1. LIPITOR [Suspect]
     Dosage: UNK, ONCE DAILY
     Route: 048

REACTIONS (2)
  - PROSTATE CANCER [None]
  - RESPIRATORY ARREST [None]
